FAERS Safety Report 23043352 (Version 1)
Quarter: 2023Q4

REPORT INFORMATION
  Report Type: Spontaneous
  Country: US (occurrence: None)
  Receive Date: 20231009
  Receipt Date: 20231009
  Transmission Date: 20240110
  Serious: No
  Sender: FDA-Public Use
  Company Number: 2023A227939

PATIENT

DRUGS (1)
  1. PRILOSEC OTC [Suspect]
     Active Substance: OMEPRAZOLE MAGNESIUM
     Dosage: TAKING FOR ABOUT 4 DAYS
     Route: 048
     Dates: start: 20230909

REACTIONS (1)
  - Hyperphagia [Unknown]

NARRATIVE: CASE EVENT DATE: 20230901
